FAERS Safety Report 11745741 (Version 1)
Quarter: 2015Q4

REPORT INFORMATION
  Report Type: Spontaneous
  Country: US (occurrence: US)
  Receive Date: 20151117
  Receipt Date: 20151117
  Transmission Date: 20160304
  Serious: No
  Sender: FDA-Public Use
  Company Number: US-VERTEX PHARMACEUTICALS-2015-005188

PATIENT
  Age: 1 Year
  Weight: 10 kg

DRUGS (1)
  1. KALYDECO [Suspect]
     Active Substance: IVACAFTOR
     Indication: CYSTIC FIBROSIS
     Dosage: 50 MG, BID
     Route: 048

REACTIONS (2)
  - Diarrhoea [Recovering/Resolving]
  - Off label use [Unknown]
